FAERS Safety Report 6573561-4 (Version None)
Quarter: 2010Q1

REPORT INFORMATION
  Report Type: 
  Country: None (occurrence: None)
  Receive Date: 20100208
  Receipt Date: 20100202
  Transmission Date: 20100710
  Serious: Yes (Death)
  Sender: FDA-Public Use
  Company Number: JP-SANOFI-AVENTIS-200912751JP

PATIENT
  Age: 71 Year
  Sex: Female
  Weight: 71 kg

DRUGS (9)
  1. DOCETAXEL [Suspect]
     Route: 041
     Dates: start: 20090730, end: 20090730
  2. DOCETAXEL [Suspect]
     Route: 041
     Dates: start: 20090709, end: 20090709
  3. DOCETAXEL [Suspect]
     Route: 041
     Dates: start: 20090618, end: 20090618
  4. ADRIACIN [Concomitant]
     Indication: BREAST CANCER
     Dates: start: 20090327, end: 20090528
  5. ENDOXAN [Concomitant]
     Indication: BREAST CANCER
     Dates: start: 20090327, end: 20090528
  6. DEXAMETHASONE [Concomitant]
     Indication: PREMEDICATION
     Route: 048
     Dates: start: 20090618, end: 20090618
  7. DEXAMETHASONE [Concomitant]
     Route: 048
     Dates: start: 20090709, end: 20090709
  8. DEXAMETHASONE [Concomitant]
     Route: 048
     Dates: start: 20090730, end: 20090730
  9. ALL OTHER THERAPEUTIC PRODUCTS [Concomitant]
     Route: 048
     Dates: start: 20090618, end: 20090730

REACTIONS (1)
  - INTERSTITIAL LUNG DISEASE [None]
